FAERS Safety Report 9584078 (Version 1)
Quarter: 2013Q4

REPORT INFORMATION
  Report Type: Spontaneous
  Country: US (occurrence: US)
  Receive Date: 20131002
  Receipt Date: 20131002
  Transmission Date: 20140711
  Serious: No
  Sender: FDA-Public Use
  Company Number: US-AMGEN-USASP2013051333

PATIENT
  Age: 52 Year
  Sex: Female
  Weight: 74.83 kg

DRUGS (8)
  1. ENBREL [Suspect]
     Indication: PRODUCT USED FOR UNKNOWN INDICATION
     Dosage: 50 MG, EVERY WEEK
     Route: 058
  2. ATORVASTATIN [Concomitant]
     Dosage: 10 MG, UNK
  3. FOLIC ACID [Concomitant]
     Dosage: 20 MG, UNK
  4. LEVOTHYROXIN [Concomitant]
     Dosage: 300 MUG, UNK
  5. SERTRALINE [Concomitant]
     Dosage: 100 MG, UNK
  6. METHOTREXATE [Concomitant]
     Dosage: 2.5 MG, UNK
  7. LIOTHYRONINE [Concomitant]
     Dosage: 5 MUG, UNK
  8. VITAMIN B12                        /00056201/ [Concomitant]
     Dosage: 1000 MUG, UNK

REACTIONS (2)
  - Injection site bruising [Unknown]
  - Injection site pain [Unknown]
